FAERS Safety Report 23292414 (Version 1)
Quarter: 2023Q4

REPORT INFORMATION
  Report Type: Other
  Country: None (occurrence: US)
  Receive Date: 20231213
  Receipt Date: 20231213
  Transmission Date: 20240110
  Serious: Yes (Hospitalization)
  Sender: FDA-Public Use
  Company Number: US-Mission Pharmacal Company-2149294

PATIENT
  Age: 44 Year
  Sex: Male

DRUGS (4)
  1. THIOLA EC [Suspect]
     Active Substance: TIOPRONIN
     Indication: Cystinuria
     Route: 048
     Dates: start: 20230728
  2. LOSARTAN [Concomitant]
     Active Substance: LOSARTAN
  3. GLIPIZIDE ER [Concomitant]
     Active Substance: GLIPIZIDE
  4. TRULICITY [Concomitant]
     Active Substance: DULAGLUTIDE

REACTIONS (1)
  - Drug ineffective [Unknown]
